FAERS Safety Report 8154190-8 (Version None)
Quarter: 2012Q1

REPORT INFORMATION
  Report Type: 
  Country: None (occurrence: None)
  Receive Date: 20120221
  Receipt Date: 20120213
  Transmission Date: 20120608
  Serious: Yes (Other)
  Sender: FDA-Public Use
  Company Number: US-ABBOTT-11P-163-0887319-00

PATIENT
  Sex: Male

DRUGS (14)
  1. SODIUM BICARBONATE [Concomitant]
     Indication: PRODUCT USED FOR UNKNOWN INDICATION
  2. PROTONIX [Concomitant]
     Indication: GASTROOESOPHAGEAL REFLUX DISEASE
  3. HUMIRA [Suspect]
     Indication: CROHN'S DISEASE
     Dosage: LOADING DOSE
     Dates: start: 20111212, end: 20111212
  4. COUMADIN [Concomitant]
     Indication: PRODUCT USED FOR UNKNOWN INDICATION
     Dosage: 2 PILLS TUESDAY-SUNDAY, 1 PILL ON MONDAY
  5. VITAMIN D [Concomitant]
     Indication: VITAMIN SUPPLEMENTATION
  6. MULTI-VITAMIN [Concomitant]
     Indication: VITAMIN SUPPLEMENTATION
  7. HUMIRA [Suspect]
     Route: 058
  8. PROGRAF [Concomitant]
     Indication: PROPHYLAXIS AGAINST TRANSPLANT REJECTION
  9. NEURONTIN [Concomitant]
     Indication: PARAESTHESIA
  10. CALCIUM [Concomitant]
     Indication: MINERAL SUPPLEMENTATION
  11. HUMIRA [Suspect]
     Dates: start: 20111226, end: 20111226
  12. VITAMIN B COMPLEX CAP [Concomitant]
     Indication: VITAMIN SUPPLEMENTATION
  13. MYCOPHENOLATE MOFETIL (CELLCEPT) [Concomitant]
     Indication: PROPHYLAXIS AGAINST TRANSPLANT REJECTION
  14. PREDNISONE [Concomitant]
     Indication: INFLAMMATION
     Route: 048

REACTIONS (15)
  - FALL [None]
  - BLINDNESS TRANSIENT [None]
  - DYSGEUSIA [None]
  - HYPOAESTHESIA [None]
  - BLOOD CALCIUM DECREASED [None]
  - NERVE COMPRESSION [None]
  - HEAD INJURY [None]
  - HEADACHE [None]
  - EPISTAXIS [None]
  - LOSS OF CONSCIOUSNESS [None]
  - MEMORY IMPAIRMENT [None]
  - NAIL DISORDER [None]
  - OPEN WOUND [None]
  - RECTAL HAEMORRHAGE [None]
  - INJECTION SITE MACULE [None]
